FAERS Safety Report 9092879 (Version 1)
Quarter: 2013Q1

REPORT INFORMATION
  Report Type: Spontaneous
  Country: US (occurrence: None)
  Receive Date: 20130213
  Receipt Date: 20130213
  Transmission Date: 20140127
  Serious: Yes (Other)
  Sender: FDA-Public Use
  Company Number: None

PATIENT
  Age: 82 Year
  Sex: Male

DRUGS (1)
  1. AVASTIN, GENENTECH [Suspect]
     Indication: MACULAR DEGENERATION
     Dosage: 1.25 MG  INTRAOCULAR?5-10 TIMES PER YEAR
     Route: 031

REACTIONS (1)
  - Inflammation [None]
